FAERS Safety Report 21088946 (Version 2)
Quarter: 2022Q3

REPORT INFORMATION
  Report Type: Spontaneous
  Country: US (occurrence: US)
  Receive Date: 20220715
  Receipt Date: 20220719
  Transmission Date: 20221027
  Serious: Yes (Other)
  Sender: FDA-Public Use
  Company Number: US-PFIZER INC-202200958908

PATIENT
  Age: 63 Year
  Sex: Female
  Weight: 81.633 kg

DRUGS (2)
  1. PREGABALIN [Suspect]
     Active Substance: PREGABALIN
     Indication: Fibromyalgia
     Dosage: 3 DF (ONE IN THE MORNING AND TWO IN THE EVENING)
  2. PREGABALIN [Suspect]
     Active Substance: PREGABALIN
     Indication: Osteoarthritis

REACTIONS (7)
  - Knee arthroplasty [Unknown]
  - Hip surgery [Unknown]
  - Shoulder operation [Unknown]
  - Spinal operation [Unknown]
  - Suicidal ideation [Unknown]
  - Hostility [Unknown]
  - Delusional perception [Unknown]
